FAERS Safety Report 6141380-9 (Version None)
Quarter: 2009Q2

REPORT INFORMATION
  Report Type: 
  Country: None (occurrence: None)
  Receive Date: 20090401
  Receipt Date: 20090401
  Transmission Date: 20091009
  Serious: Yes (Hospitalization, Other)
  Sender: FDA-Public Use
  Company Number: None

PATIENT
  Age: 16 Year
  Sex: Male
  Weight: 63.5036 kg

DRUGS (1)
  1. ACCUTANE [Suspect]
     Indication: ACNE CYSTIC
     Dates: start: 19990510, end: 19990911

REACTIONS (10)
  - AGORAPHOBIA [None]
  - ANXIETY [None]
  - DEPRESSION [None]
  - DRUG ABUSE [None]
  - FIBROMYALGIA [None]
  - GENERAL PHYSICAL CONDITION ABNORMAL [None]
  - IMPAIRED WORK ABILITY [None]
  - MIGRAINE [None]
  - SELF-MEDICATION [None]
  - SUICIDAL IDEATION [None]
